FAERS Safety Report 8758492 (Version 3)
Quarter: 2013Q3

REPORT INFORMATION
  Report Type: Spontaneous
  Country: US (occurrence: None)
  Receive Date: 20120817
  Receipt Date: 20130830
  Transmission Date: 20140515
  Serious: Yes (Hospitalization)
  Sender: FDA-Public Use
  Company Number: ACO_31510_2012

PATIENT
  Age: 50 Year
  Sex: Male

DRUGS (8)
  1. AMPYRA [Suspect]
     Indication: GAIT DISTURBANCE
     Dates: start: 2011, end: 2011
  2. CIALIS (TADALAFIL) [Concomitant]
  3. SYNTHROID (LEVOTHYROXINE SODIUM) [Concomitant]
  4. CETIRIZINE (CETIRIZINE HYDROCHLORIDE) [Concomitant]
  5. CRESTOR (ROSUVASTATIN CALCIUM) [Concomitant]
  6. ALLOPURINOL [Concomitant]
  7. VITAMIN D (ERGOCALCIFEROL) [Concomitant]
  8. GILENYA (FINGOLIMOD HYDROCHLORIDE) [Suspect]
     Indication: PRODUCT USED FOR UNKNOWN INDICATION
     Dates: start: 20130523

REACTIONS (7)
  - Cardiac disorder [None]
  - Blood pressure increased [None]
  - Presyncope [None]
  - Multiple sclerosis relapse [None]
  - Headache [None]
  - Dizziness [None]
  - Diplopia [None]
